FAERS Safety Report 4708751-6 (Version None)
Quarter: 2005Q3

REPORT INFORMATION
  Report Type: 
  Country: None (occurrence: None)
  Receive Date: 20050706
  Receipt Date: 20050620
  Transmission Date: 20060218
  Serious: Yes (Death, Hospitalization)
  Sender: FDA-Public Use
  Company Number: 2005EU001294

PATIENT
  Age: 42 Year
  Sex: Female

DRUGS (1)
  1. PROGRAF [Suspect]
     Indication: HEART TRANSPLANT

REACTIONS (10)
  - ANAEMIA [None]
  - BLOOD DISORDER [None]
  - EOSINOPHILIA [None]
  - GENERAL PHYSICAL HEALTH DETERIORATION [None]
  - HERPES VIRUS INFECTION [None]
  - KAPOSI'S SARCOMA [None]
  - PHARYNGOLARYNGEAL PAIN [None]
  - RESPIRATORY FAILURE [None]
  - SPLENOMEGALY [None]
  - THROMBOCYTOPENIA [None]
